FAERS Safety Report 5421890-X (Version None)
Quarter: 2007Q3

REPORT INFORMATION
  Report Type: 
  Country: None (occurrence: None)
  Receive Date: 20070817
  Receipt Date: 20070803
  Transmission Date: 20080115
  Serious: Yes (Other)
  Sender: FDA-Public Use
  Company Number: 2007S1007256

PATIENT
  Age: 32 Month
  Sex: Male

DRUGS (4)
  1. ZONEGRAN [Suspect]
     Indication: CONVULSION PROPHYLAXIS
     Dosage: ORAL
     Route: 048
  2. PHENYTOIN SODIUM [Suspect]
     Indication: CONVULSION PROPHYLAXIS
     Dosage: ORAL
     Route: 048
  3. PHENOBARBITAL TAB [Suspect]
     Indication: CONVULSION PROPHYLAXIS
     Dosage: ORAL
     Route: 048
  4. VALPROATE SODIUM [Suspect]
     Indication: CONVULSION PROPHYLAXIS
     Dosage: ORAL
     Route: 048

REACTIONS (5)
  - CYANOSIS [None]
  - LOSS OF CONSCIOUSNESS [None]
  - POSTURING [None]
  - STARING [None]
  - TRANSIENT HYPOGAMMAGLOBULINAEMIA OF INFANCY [None]
